FAERS Safety Report 25609443 (Version 1)
Quarter: 2025Q3

REPORT INFORMATION
  Report Type: Spontaneous
  Country: US (occurrence: US)
  Receive Date: 20250727
  Receipt Date: 20250727
  Transmission Date: 20251021
  Serious: No
  Sender: SANOFI AVENTIS
  Company Number: US-SA-2025SA213147

PATIENT
  Sex: Male

DRUGS (7)
  1. DUPIXENT [Suspect]
     Active Substance: DUPILUMAB
     Indication: Dermatitis allergic
     Dosage: 300 MG, Q4W
     Route: 058
     Dates: start: 20230415
  2. Betameth dipropionate [Concomitant]
  3. CETIRIZINE [Concomitant]
     Active Substance: CETIRIZINE HYDROCHLORIDE
  4. HYDROXYZINE HYDROCHLORIDE [Concomitant]
     Active Substance: HYDROXYZINE HYDROCHLORIDE
  5. TACROLIMUS [Concomitant]
     Active Substance: TACROLIMUS
  6. Triamcinolon [Concomitant]
  7. Triamcinolon [Concomitant]

REACTIONS (3)
  - Dermatitis allergic [Unknown]
  - Condition aggravated [Unknown]
  - Dry skin [Unknown]
